FAERS Safety Report 6705692-X (Version None)
Quarter: 2010Q2

REPORT INFORMATION
  Report Type: 
  Country: None (occurrence: None)
  Receive Date: 20100503
  Receipt Date: 20100428
  Transmission Date: 20101027
  Serious: Yes (Life-Threatening)
  Sender: FDA-Public Use
  Company Number: JP-JNJFOC-20100407578

PATIENT
  Age: 33 Year
  Sex: Female

DRUGS (3)
  1. CRAVIT [Suspect]
     Indication: PAIN IN JAW
     Route: 048
  2. LOXONIN [Suspect]
     Indication: PAIN IN JAW
     Route: 048
  3. VOLTAREN [Concomitant]
     Indication: PAIN IN JAW
     Route: 065

REACTIONS (4)
  - DIPLOPIA [None]
  - FALL [None]
  - HEADACHE [None]
  - MUSCLE SPASMS [None]
